FAERS Safety Report 6864527-5 (Version None)
Quarter: 2010Q3

REPORT INFORMATION
  Report Type: 
  Country: None (occurrence: None)
  Receive Date: 20100721
  Receipt Date: 20080502
  Transmission Date: 20110219
  Serious: Yes (Other)
  Sender: FDA-Public Use
  Company Number: US-PFIZER INC-2008029238

PATIENT
  Sex: Female
  Weight: 61.4 kg

DRUGS (1)
  1. CHANTIX [Suspect]
     Indication: SMOKING CESSATION THERAPY
     Dates: start: 20080316, end: 20080327

REACTIONS (10)
  - ABNORMAL BEHAVIOUR [None]
  - AGGRESSION [None]
  - ARTHRALGIA [None]
  - BONE PAIN [None]
  - CONVERSION DISORDER [None]
  - CRYING [None]
  - HYPERSOMNIA [None]
  - MENTAL DISORDER [None]
  - MYALGIA [None]
  - NAUSEA [None]
